FAERS Safety Report 18761811 (Version 1)
Quarter: 2021Q1

REPORT INFORMATION
  Report Type: Report from Study
  Country: TR (occurrence: TR)
  Receive Date: 20210120
  Receipt Date: 20210120
  Transmission Date: 20210419
  Serious: Yes (Death, Life-Threatening)
  Sender: FDA-Public Use
  Company Number: TR-PFIZER INC-2021034871

PATIENT

DRUGS (2)
  1. COLISTIN [Concomitant]
     Active Substance: COLISTIN
     Indication: BACTERAEMIA
     Dosage: UNK
  2. TIGECYCLINE. [Suspect]
     Active Substance: TIGECYCLINE
     Indication: BACTERAEMIA
     Dosage: 1 MG/KG, DAILY
     Route: 042

REACTIONS (2)
  - Acinetobacter infection [Fatal]
  - Pathogen resistance [Fatal]
